FAERS Safety Report 7535660-X (Version None)
Quarter: 2011Q2

REPORT INFORMATION
  Report Type: 
  Country: None (occurrence: None)
  Receive Date: 20110524
  Receipt Date: 20110524
  Transmission Date: 20111010
  Serious: No
  Sender: FDA-Public Use
  Company Number: 031036

PATIENT
  Sex: Female

DRUGS (1)
  1. CIMZIA [Suspect]
     Indication: CROHN'S DISEASE
     Dosage: 400MG 1X/ 2 WEEKS SUBCUTANEOUS
     Route: 058
     Dates: start: 20090803

REACTIONS (3)
  - RESPIRATORY RATE INCREASED [None]
  - SOMNOLENCE [None]
  - APNOEA [None]
